FAERS Safety Report 19772968 (Version 1)
Quarter: 2021Q3

REPORT INFORMATION
  Report Type: Report from Study
  Country: None (occurrence: CA)
  Receive Date: 20210901
  Receipt Date: 20210901
  Transmission Date: 20211014
  Serious: Yes (Other)
  Sender: FDA-Public Use
  Company Number: CA-ABBVIE-21K-028-4058359-00

PATIENT
  Sex: Male

DRUGS (1)
  1. HUMIRA [Suspect]
     Active Substance: ADALIMUMAB
     Indication: CROHN^S DISEASE
     Route: 058
     Dates: start: 20090205

REACTIONS (7)
  - Aphthous ulcer [Recovered/Resolved]
  - Rotator cuff syndrome [Not Recovered/Not Resolved]
  - Wound secretion [Not Recovered/Not Resolved]
  - Diarrhoea [Not Recovered/Not Resolved]
  - Anal fistula [Not Recovered/Not Resolved]
  - General physical health deterioration [Not Recovered/Not Resolved]
  - Abdominal pain [Not Recovered/Not Resolved]

NARRATIVE: CASE EVENT DATE: 2021
